FAERS Safety Report 25185247 (Version 2)
Quarter: 2025Q2

REPORT INFORMATION
  Report Type: Spontaneous
  Country: CA (occurrence: CA)
  Receive Date: 20250410
  Receipt Date: 20250424
  Transmission Date: 20250716
  Serious: No
  Sender: PFIZER
  Company Number: CA-PFIZER INC-202500073285

PATIENT
  Age: 27 Year
  Sex: Male

DRUGS (4)
  1. CIBINQO [Suspect]
     Active Substance: ABROCITINIB
     Indication: Dermatitis atopic
     Dosage: 200 MG, 1X/DAY
     Route: 048
     Dates: start: 20240819
  2. BETADERM [POVIDONE-IODINE] [Concomitant]
  3. CYCLOSPORINE [Concomitant]
     Active Substance: CYCLOSPORINE
  4. METHOTREXATE [Concomitant]
     Active Substance: METHOTREXATE

REACTIONS (1)
  - Tooth infection [Recovering/Resolving]

NARRATIVE: CASE EVENT DATE: 20250101
